FAERS Safety Report 4289385-7 (Version None)
Quarter: 2004Q1

REPORT INFORMATION
  Report Type: 
  Country: None (occurrence: None)
  Receive Date: 20040205
  Receipt Date: 20040123
  Transmission Date: 20041129
  Serious: Yes (Hospitalization, Disabling, Other)
  Sender: FDA-Public Use
  Company Number: 2003-06340

PATIENT
  Sex: Male

DRUGS (3)
  1. HEPSERA [Suspect]
     Indication: HEPATITIS B
     Dosage: 10 MG QD PO
     Route: 048
     Dates: start: 20031004, end: 20031121
  2. EPIVIR [Concomitant]
  3. KEFLEX [Concomitant]

REACTIONS (8)
  - COLITIS [None]
  - CONDITION AGGRAVATED [None]
  - HEPATITIS B VIRUS [None]
  - HEPATITIS C POSITIVE [None]
  - HEPATOSPLENOMEGALY [None]
  - INTERNATIONAL NORMALISED RATIO INCREASED [None]
  - LOCALISED INFECTION [None]
  - URTICARIA [None]
